FAERS Safety Report 18440825 (Version 1)
Quarter: 2020Q4

REPORT INFORMATION
  Report Type: Spontaneous
  Country: US (occurrence: US)
  Receive Date: 20201029
  Receipt Date: 20201029
  Transmission Date: 20210114
  Serious: Yes (Hospitalization, Other)
  Sender: FDA-Public Use
  Company Number: US-BAYER-2020-231528

PATIENT
  Age: 2 Year
  Sex: Male

DRUGS (2)
  1. ACETYLSALICYLIC ACID [Suspect]
     Active Substance: ASPIRIN
  2. COUMADIN [Suspect]
     Active Substance: WARFARIN SODIUM

REACTIONS (5)
  - Product use issue [None]
  - Labelled drug-drug interaction medication error [None]
  - Off label use [None]
  - Subarachnoid haemorrhage [None]
  - Subdural haemorrhage [None]
